FAERS Safety Report 6846825 (Version 2)
Quarter: 2013Q1

REPORT INFORMATION
  Report Type: Report from Study
  Country: US (occurrence: US)
  Receive Date: 20081212
  Receipt Date: 20130128
  Transmission Date: 20140127
  Serious: No
  Sender: FDA-Public Use
  Company Number: US-ABBOTT-08P-163-0481325-00

PATIENT
  Sex: Female

DRUGS (5)
  1. HUMIRA 40 MG/ 0.8 ML PRE-FILLED SYRINGE [Suspect]
     Indication: RHEUMATOID ARTHRITIS
     Route: 058
     Dates: end: 200712
  2. HUMIRA 40 MG/ 0.8 ML PRE-FILLED SYRINGE [Suspect]
     Route: 058
     Dates: start: 20080819, end: 200809
  3. HUMIRA 40 MG/ 0.8 ML PRE-FILLED SYRINGE [Suspect]
     Route: 058
  4. UNKNOWN MEDICATION [Concomitant]
     Indication: BONE DISORDER
  5. ANTIBIOTIC [Concomitant]
     Indication: DENTAL CARE
     Dates: start: 200809

REACTIONS (9)
  - Infection [Recovered/Resolved]
  - Pain [Recovering/Resolving]
  - Pain [Recovering/Resolving]
  - Asthenia [Recovering/Resolving]
  - Nasal congestion [Not Recovered/Not Resolved]
  - Sensation of heaviness [Recovering/Resolving]
  - Conjunctivitis infective [Unknown]
  - Conjunctivitis infective [Unknown]
  - Ocular hyperaemia [Not Recovered/Not Resolved]
